FAERS Safety Report 7032294-0 (Version None)
Quarter: 2010Q4

REPORT INFORMATION
  Report Type: 
  Country: None (occurrence: None)
  Receive Date: 20101007
  Receipt Date: 20100806
  Transmission Date: 20110411
  Serious: No
  Sender: FDA-Public Use
  Company Number: A0876142A

PATIENT
  Sex: Male

DRUGS (1)
  1. REQUIP XL [Suspect]
     Indication: PRODUCT USED FOR UNKNOWN INDICATION
     Dosage: 24MGD PER DAY
     Route: 048

REACTIONS (2)
  - BLOOD PRESSURE DECREASED [None]
  - BLOOD PRESSURE INCREASED [None]
